FAERS Safety Report 6942578-X (Version None)
Quarter: 2010Q3

REPORT INFORMATION
  Report Type: 
  Country: None (occurrence: None)
  Receive Date: 20100826
  Receipt Date: 20100817
  Transmission Date: 20110219
  Serious: Yes (Life-Threatening, Other)
  Sender: FDA-Public Use
  Company Number: SA-B.I. PHARMACEUTICALS,INC./RIDGEFIELD-2010-DE-04492GD

PATIENT
  Age: 36 Year
  Sex: Female

DRUGS (16)
  1. RANITIDINE [Suspect]
     Indication: GASTROOESOPHAGEAL REFLUX DISEASE
     Dosage: 300 MG
     Route: 048
     Dates: start: 19981201
  2. CISAPRIDE [Suspect]
     Indication: DYSPEPSIA
     Dosage: 30 MG
     Dates: start: 19981201, end: 19981207
  3. CISAPRIDE [Suspect]
     Indication: GASTROOESOPHAGEAL REFLUX DISEASE
  4. METRONIDAZOLE [Suspect]
     Indication: ABDOMINAL WALL HAEMATOMA
     Dates: start: 19981101
  5. METRONIDAZOLE [Suspect]
     Indication: ABDOMINAL WALL INFECTION
  6. AMIODARONE [Suspect]
     Indication: TORSADE DE POINTES
     Dates: start: 19981201
  7. LOPERAMIDE [Concomitant]
     Indication: ABDOMINAL WALL HAEMATOMA
     Dates: start: 19981101
  8. LOPERAMIDE [Concomitant]
     Indication: ABDOMINAL WALL INFECTION
  9. NITROFURANTOIN [Concomitant]
     Indication: ABDOMINAL WALL HAEMATOMA
     Dates: start: 19981101
  10. NITROFURANTOIN [Concomitant]
     Indication: ABDOMINAL WALL INFECTION
  11. TRIMETHOPRIM + SULFAMETHOXAZOLE [Concomitant]
     Indication: ABDOMINAL WALL HAEMATOMA
     Dates: start: 19981101
  12. TRIMETHOPRIM + SULFAMETHOXAZOLE [Concomitant]
     Indication: ABDOMINAL WALL INFECTION
  13. TETRACYCLINE [Concomitant]
     Indication: ABDOMINAL WALL HAEMATOMA
     Dates: start: 19981101
  14. TETRACYCLINE [Concomitant]
     Indication: ABDOMINAL WALL INFECTION
  15. METOCLOPRAMIDE [Concomitant]
     Indication: ANTIEMETIC SUPPORTIVE CARE
     Dates: start: 19981101
  16. ONDANSETRON [Concomitant]
     Indication: ANTIEMETIC SUPPORTIVE CARE
     Dates: start: 19981101

REACTIONS (5)
  - CIRCULATORY COLLAPSE [None]
  - DRUG INTERACTION [None]
  - LOSS OF CONSCIOUSNESS [None]
  - PULSE ABSENT [None]
  - TORSADE DE POINTES [None]
